FAERS Safety Report 24468221 (Version 1)
Quarter: 2024Q4

REPORT INFORMATION
  Report Type: Spontaneous
  Country: JP (occurrence: JP)
  Receive Date: 20241018
  Receipt Date: 20241018
  Transmission Date: 20250115
  Serious: Yes (Life-Threatening, Other)
  Sender: SANDOZ
  Company Number: JP-SANDOZ-SDZ2024JP088167

PATIENT
  Age: 72 Year
  Sex: Female

DRUGS (10)
  1. ADALIMUMAB [Suspect]
     Active Substance: ADALIMUMAB
     Indication: Psoriasis
     Dosage: 40-80 MG, Q2W
     Route: 065
  2. ADALIMUMAB [Suspect]
     Active Substance: ADALIMUMAB
     Indication: Psoriatic arthropathy
  3. CYCLOSPORINE [Suspect]
     Active Substance: CYCLOSPORINE
     Indication: Psoriatic arthropathy
     Dosage: 150-200 MG/DAY
     Route: 065
  4. CYCLOSPORINE [Suspect]
     Active Substance: CYCLOSPORINE
     Indication: Psoriasis
  5. ETRETINATE [Suspect]
     Active Substance: ETRETINATE
     Indication: Psoriasis
     Dosage: UNK
     Route: 065
  6. ETRETINATE [Suspect]
     Active Substance: ETRETINATE
     Indication: Psoriatic arthropathy
  7. METHOTREXATE [Suspect]
     Active Substance: METHOTREXATE
     Indication: Psoriatic arthropathy
     Dosage: 8 MG/WEEK
     Route: 065
  8. METHOTREXATE [Suspect]
     Active Substance: METHOTREXATE
     Indication: Psoriasis
     Dosage: 6-12 MG/WEEK
     Route: 065
  9. USTEKINUMAB [Suspect]
     Active Substance: USTEKINUMAB
     Indication: Psoriatic arthropathy
     Dosage: 45 MG, Q3MO
     Route: 065
  10. USTEKINUMAB [Suspect]
     Active Substance: USTEKINUMAB
     Indication: Psoriasis

REACTIONS (1)
  - Breast cancer [Recovered/Resolved]
